FAERS Safety Report 6182845-3 (Version None)
Quarter: 2009Q2

REPORT INFORMATION
  Report Type: 
  Country: None (occurrence: None)
  Receive Date: 20090507
  Receipt Date: 20090427
  Transmission Date: 20091009
  Serious: Yes (Other)
  Sender: FDA-Public Use
  Company Number: US-WYE-H09127009

PATIENT
  Sex: Female

DRUGS (1)
  1. EFFEXOR [Suspect]
     Dosage: UNKNOWN

REACTIONS (8)
  - APATHY [None]
  - DECREASED INTEREST [None]
  - DEPRESSION [None]
  - FATIGUE [None]
  - HOMICIDAL IDEATION [None]
  - NIGHTMARE [None]
  - PERSONALITY CHANGE [None]
  - UNEVALUABLE EVENT [None]
